FAERS Safety Report 7423619-2 (Version None)
Quarter: 2011Q2

REPORT INFORMATION
  Report Type: 
  Country: None (occurrence: None)
  Receive Date: 20110411
  Receipt Date: 20110330
  Transmission Date: 20111010
  Serious: Yes (Life-Threatening)
  Sender: FDA-Public Use
  Company Number: 1000019801

PATIENT
  Age: 73 Year
  Sex: Male

DRUGS (5)
  1. ATMADISC (SERETIDE MITE) (INHALANT) [Concomitant]
  2. THEOPHYLLINE [Concomitant]
  3. ROFLUMILAST (ROFLUMILAST) (TALETS) [Suspect]
     Indication: CHRONIC OBSTRUCTIVE PULMONARY DISEASE
     Dosage: 500 MCG (500 MCG)
     Dates: start: 20110217, end: 20110304
  4. OXYGEN (OXYGEN) [Concomitant]
  5. ATROVENT (INHALANT) [Concomitant]

REACTIONS (1)
  - CIRCULATORY COLLAPSE [None]
